FAERS Safety Report 18663776 (Version 1)
Quarter: 2020Q4

REPORT INFORMATION
  Report Type: Spontaneous
  Country: US (occurrence: US)
  Receive Date: 20201224
  Receipt Date: 20201224
  Transmission Date: 20210114
  Serious: Yes (Other)
  Sender: FDA-Public Use
  Company Number: US-AUROBINDO-AUR-APL-2020-062338

PATIENT
  Age: 5 Year
  Sex: Female

DRUGS (4)
  1. DASATINIB. [Suspect]
     Active Substance: DASATINIB
     Indication: CHRONIC MYELOID LEUKAEMIA
     Dosage: 60 MILLIGRAM/SQ. METER, ONCE A DAY
     Route: 065
  2. DASATINIB. [Suspect]
     Active Substance: DASATINIB
     Dosage: 120 MILLIGRAM/SQ. METER, ONCE A DAY
     Route: 065
  3. IMATINIB. [Suspect]
     Active Substance: IMATINIB MESYLATE
     Indication: CHRONIC MYELOID LEUKAEMIA
     Dosage: 340 MILLIGRAM/SQ. METER
     Route: 065
  4. DASATINIB. [Suspect]
     Active Substance: DASATINIB
     Dosage: 150 MILLIGRAM/SQ. METER, ONCE A DAY
     Route: 065

REACTIONS (2)
  - Drug resistance [Unknown]
  - Chylothorax [Recovered/Resolved]
